FAERS Safety Report 24349192 (Version 1)
Quarter: 2024Q3

REPORT INFORMATION
  Report Type: Spontaneous
  Country: FR (occurrence: FR)
  Receive Date: 20240923
  Receipt Date: 20240923
  Transmission Date: 20241017
  Serious: Yes (Hospitalization, Other)
  Sender: CELLTRION
  Company Number: None

PATIENT

DRUGS (8)
  1. RITUXIMAB [Suspect]
     Active Substance: RITUXIMAB
     Indication: Lupus nephritis
     Dosage: 500 MG EVERY 1 DAY
     Route: 042
     Dates: start: 20221228, end: 20221228
  2. RITUXIMAB [Suspect]
     Active Substance: RITUXIMAB
     Dosage: 500 MG EVERY 1 DAY
     Route: 042
     Dates: start: 20220614, end: 20220614
  3. PLAQUENIL [Suspect]
     Active Substance: HYDROXYCHLOROQUINE SULFATE
     Indication: Systemic lupus erythematosus
     Dosage: 1 DF EVERY 12 HOUR
     Route: 048
  4. PREDNISONE [Suspect]
     Active Substance: PREDNISONE
     Indication: Systemic lupus erythematosus
     Dosage: 5 MG EVERY 1 DAY
     Route: 048
  5. RAMIPRIL [Suspect]
     Active Substance: RAMIPRIL
     Indication: Hypertension
     Dosage: 5 MG EVERY 12 HOUR
     Route: 048
  6. BACTRIM [Suspect]
     Active Substance: SULFAMETHOXAZOLE\TRIMETHOPRIM
     Indication: Antifungal prophylaxis
     Dosage: 1 DF EVERY 2 DAYS
     Route: 048
  7. BENLYSTA [Suspect]
     Active Substance: BELIMUMAB
     Indication: Lupus nephritis
     Dosage: 1 DF EVERY 1 WEEK
     Route: 058
  8. ARANESP [Suspect]
     Active Substance: DARBEPOETIN ALFA
     Indication: Anaemia
     Dosage: 1 DF EVERY MONTH
     Route: 058

REACTIONS (2)
  - Agranulocytosis [Recovering/Resolving]
  - Intentional product use issue [Unknown]

NARRATIVE: CASE EVENT DATE: 20230501
